FAERS Safety Report 7380224-4 (Version None)
Quarter: 2011Q1

REPORT INFORMATION
  Report Type: 
  Country: None (occurrence: None)
  Receive Date: 20110329
  Receipt Date: 20110112
  Transmission Date: 20110831
  Serious: No
  Sender: FDA-Public Use
  Company Number: A0905427A

PATIENT
  Age: 59 Year
  Sex: Male

DRUGS (5)
  1. LAMICTAL [Suspect]
     Dosage: 100MG PER DAY
     Route: 048
     Dates: start: 20101213
  2. TRILEPTAL [Concomitant]
  3. GLUCOSAMINE [Concomitant]
  4. HYZAAR [Concomitant]
  5. CLONAZEPAM [Concomitant]

REACTIONS (3)
  - ILL-DEFINED DISORDER [None]
  - ARTHRALGIA [None]
  - JOINT CREPITATION [None]
